FAERS Safety Report 5240296-X (Version None)
Quarter: 2007Q1

REPORT INFORMATION
  Report Type: 
  Country: None (occurrence: None)
  Receive Date: 20061208
  Receipt Date: 20050201
  Transmission Date: 20070707
  Serious: Yes (Other)
  Sender: FDA-Public Use
  Company Number: 2005UW01740

PATIENT
  Age: 35 Year
  Sex: Male
  Weight: 108.86 kg

DRUGS (3)
  1. CRESTOR [Suspect]
     Indication: HYPERCHOLESTEROLAEMIA
     Dosage: 40 MG QD PO
     Route: 048
  2. TRICOR [Concomitant]
  3. DICLOFENAC SODIUM [Concomitant]

REACTIONS (3)
  - FATIGUE [None]
  - MALAISE [None]
  - MYALGIA [None]
